FAERS Safety Report 9944628 (Version 1)
Quarter: 2014Q1

REPORT INFORMATION
  Report Type: Report from Study
  Country: US (occurrence: US)
  Receive Date: 20140303
  Receipt Date: 20140303
  Transmission Date: 20141002
  Serious: No
  Sender: FDA-Public Use
  Company Number: US-ABBVIE-13P-163-1053907-00

PATIENT
  Age: 49 Year
  Sex: Female

DRUGS (4)
  1. HUMIRA [Suspect]
     Indication: CROHN^S DISEASE
     Dosage: STARTER DOSE
     Dates: start: 20130201, end: 20130201
  2. HUMIRA [Suspect]
     Dates: start: 20130215, end: 20130215
  3. HUMIRA [Suspect]
  4. AZATHIOPRINE [Concomitant]
     Indication: CROHN^S DISEASE
     Route: 048

REACTIONS (2)
  - Headache [Recovering/Resolving]
  - Drug ineffective [Unknown]
